FAERS Safety Report 9062515 (Version 2)
Quarter: 2013Q1

REPORT INFORMATION
  Report Type: Spontaneous
  Country: CN (occurrence: CN)
  Receive Date: 20130213
  Receipt Date: 20130214
  Transmission Date: 20140127
  Serious: Yes (Other)
  Sender: FDA-Public Use
  Company Number: CN-ABBOTT-13P-035-1033490-00

PATIENT
  Age: 24 Year
  Sex: Male

DRUGS (3)
  1. DEPAKINE CHRONO [Suspect]
     Indication: EPILEPSY
     Route: 048
     Dates: start: 2006, end: 2007
  2. DEPAKINE CHRONO [Suspect]
     Route: 048
     Dates: start: 2007, end: 2009
  3. DEPAKINE CHRONO [Suspect]
     Route: 048
     Dates: start: 2009

REACTIONS (4)
  - Loss of consciousness [Recovered/Resolved]
  - Epilepsy [Recovered/Resolved]
  - Product counterfeit [Unknown]
  - Convulsion [Recovered/Resolved]
